FAERS Safety Report 20597877 (Version 1)
Quarter: 2022Q1

REPORT INFORMATION
  Report Type: Spontaneous
  Country: JP (occurrence: JP)
  Receive Date: 20220315
  Receipt Date: 20220315
  Transmission Date: 20220424
  Serious: Yes (Other)
  Sender: FDA-Public Use
  Company Number: JP-GSKJP-JP2022JPN023568

PATIENT
  Sex: Male

DRUGS (1)
  1. BOTOX [Suspect]
     Active Substance: ONABOTULINUMTOXINA
     Indication: Neurogenic bladder
     Dosage: 200 UNITS, SINGLE

REACTIONS (4)
  - Autonomic dysreflexia [Unknown]
  - Autonomic nervous system imbalance [Unknown]
  - Blood pressure systolic increased [Unknown]
  - Headache [Unknown]
